FAERS Safety Report 19086021 (Version 1)
Quarter: 2021Q2

REPORT INFORMATION
  Report Type: Report from Study
  Country: PL (occurrence: PL)
  Receive Date: 20210402
  Receipt Date: 20210402
  Transmission Date: 20210717
  Serious: Yes (Other)
  Sender: FDA-Public Use
  Company Number: PL-REGENERON PHARMACEUTICALS, INC.-2021-38475

PATIENT

DRUGS (1)
  1. EYLEA [Suspect]
     Active Substance: AFLIBERCEPT
     Indication: PRODUCT USED FOR UNKNOWN INDICATION
     Dosage: 2 MG, TOTAL EYLEA DOSE AND LAST DOSE PRIOR THE EVENT WERE NOT REPORTED
     Route: 031
     Dates: start: 20180228

REACTIONS (3)
  - Drug ineffective [Unknown]
  - Visual acuity reduced [Unknown]
  - Retinal injury [Unknown]

NARRATIVE: CASE EVENT DATE: 20190903
